FAERS Safety Report 6064698-7 (Version None)
Quarter: 2009Q1

REPORT INFORMATION
  Report Type: 
  Country: None (occurrence: None)
  Receive Date: 20090204
  Receipt Date: 20080624
  Transmission Date: 20090719
  Serious: No
  Sender: FDA-Public Use
  Company Number: A0734567A

PATIENT
  Sex: Male

DRUGS (1)
  1. ARIXTRA [Suspect]

REACTIONS (1)
  - MEDICATION ERROR [None]
